FAERS Safety Report 13302460 (Version 1)
Quarter: 2017Q1

REPORT INFORMATION
  Report Type: Spontaneous
  Country: US (occurrence: US)
  Receive Date: 20170307
  Receipt Date: 20170307
  Transmission Date: 20170428
  Serious: No
  Sender: FDA-Public Use
  Company Number: US-SEBELA IRELAND LIMITED-2016SEB00297

PATIENT
  Sex: Female

DRUGS (1)
  1. ANALPRAM HC CREAM 2.5% [Suspect]
     Active Substance: HYDROCORTISONE ACETATE\PRAMOXINE HYDROCHLORIDE
     Indication: PROCTALGIA

REACTIONS (2)
  - Anorectal discomfort [Unknown]
  - Expired product administered [Unknown]

NARRATIVE: CASE EVENT DATE: 20160715
